FAERS Safety Report 9036616 (Version 1)
Quarter: 2013Q1

REPORT INFORMATION
  Report Type: Spontaneous
  Country: US (occurrence: None)
  Receive Date: 20130117
  Receipt Date: 20130117
  Transmission Date: 20140127
  Serious: Yes (Other)
  Sender: FDA-Public Use
  Company Number: None

PATIENT
  Age: 63 Year
  Sex: Female

DRUGS (1)
  1. NITROFURANTOIN [Suspect]
     Indication: URINARY TRACT INFECTION
     Route: 048
     Dates: start: 20121228, end: 20130107

REACTIONS (6)
  - Influenza like illness [None]
  - Rash generalised [None]
  - Hyperhidrosis [None]
  - Chills [None]
  - Pain [None]
  - Pain [None]
